FAERS Safety Report 20953065 (Version 1)
Quarter: 2022Q2

REPORT INFORMATION
  Report Type: Spontaneous
  Country: US (occurrence: US)
  Receive Date: 20220613
  Receipt Date: 20220613
  Transmission Date: 20220721
  Serious: No
  Sender: FDA-Public Use
  Company Number: US-GALDERMA-US2021015860

PATIENT

DRUGS (3)
  1. ORACEA [Suspect]
     Active Substance: DOXYCYCLINE
     Indication: Rosacea
     Dosage: 1 DOSAGE FORM, ONCE DAILY
     Route: 048
     Dates: start: 202107, end: 2021
  2. ORACEA [Suspect]
     Active Substance: DOXYCYCLINE
     Dosage: 1 DOSAGE FORM, ONCE DAILY
     Route: 048
     Dates: start: 2021
  3. ADVAIR HFA [Concomitant]
     Active Substance: FLUTICASONE PROPIONATE\SALMETEROL XINAFOATE
     Indication: Asthma

REACTIONS (1)
  - Dysphagia [Not Recovered/Not Resolved]

NARRATIVE: CASE EVENT DATE: 20210701
